FAERS Safety Report 11529088 (Version 1)
Quarter: 2015Q3

REPORT INFORMATION
  Report Type: Spontaneous
  Country: GB (occurrence: GB)
  Receive Date: 20150921
  Receipt Date: 20150921
  Transmission Date: 20151125
  Serious: Yes (Death)
  Sender: FDA-Public Use
  Company Number: GB-CIPLA LTD.-2015GB07456

PATIENT

DRUGS (3)
  1. IFOSFAMIDE. [Suspect]
     Active Substance: IFOSFAMIDE
     Indication: UTERINE CANCER
     Dosage: 3 G/M2 ON DAY 1 EVERY THREE WEEKLY FOR 4-6 CYCLES
     Route: 042
  2. MESNA. [Suspect]
     Active Substance: MESNA
     Indication: UTERINE CANCER
     Dosage: 1 G/M2 ON DAY 1 EVERY THREE WEEKLY FOR 4-6 CYCLES
     Route: 042
  3. CARBOPLATIN. [Suspect]
     Active Substance: CARBOPLATIN
     Indication: UTERINE CANCER
     Dosage: AREA UNDER THE CURVE (AUC) 5 ON DAY 1 EVERY THREE WEEKLY FOR 4-6 CYCLES
     Route: 042

REACTIONS (1)
  - Disease progression [Fatal]
